FAERS Safety Report 10930242 (Version 1)
Quarter: 2015Q1

REPORT INFORMATION
  Report Type: Spontaneous
  Country: US (occurrence: None)
  Receive Date: 20150318
  Receipt Date: 20150318
  Transmission Date: 20150721
  Serious: Yes (Hospitalization)
  Sender: FDA-Public Use
  Company Number: None

PATIENT
  Age: 61 Year
  Sex: Male
  Weight: 64 kg

DRUGS (15)
  1. ZOFRAN [Concomitant]
     Active Substance: ONDANSETRON HYDROCHLORIDE
  2. HUMALOG [Concomitant]
     Active Substance: INSULIN LISPRO
  3. FUROSEMIDE. [Concomitant]
     Active Substance: FUROSEMIDE
  4. PROPRANOLOL [Concomitant]
     Active Substance: PROPRANOLOL\PROPRANOLOL HYDROCHLORIDE
  5. PROTONIX [Concomitant]
     Active Substance: PANTOPRAZOLE SODIUM
  6. MILK OF MAGNESIA [Concomitant]
     Active Substance: MAGNESIUM HYDROXIDE
  7. SPIRONOLACTONE. [Concomitant]
     Active Substance: SPIRONOLACTONE
  8. DILAUDID [Concomitant]
     Active Substance: HYDROMORPHONE HYDROCHLORIDE
  9. TYLENOL [Concomitant]
     Active Substance: ACETAMINOPHEN
  10. MAALOX ANTACID [Concomitant]
     Active Substance: ALUMINUM HYDROXIDE\DIMETHICONE\MAGNESIUM HYDROXIDE
  11. HARVONI [Suspect]
     Active Substance: LEDIPASVIR\SOFOSBUVIR
     Indication: HEPATITIS C
     Route: 048
     Dates: start: 20150117
  12. LANTUS [Concomitant]
     Active Substance: INSULIN GLARGINE
  13. COLACE [Concomitant]
     Active Substance: DOCUSATE SODIUM
  14. DULCOLAX [Concomitant]
     Active Substance: BISACODYL OR DOCUSATE SODIUM
  15. NORCO [Concomitant]
     Active Substance: ACETAMINOPHEN\HYDROCODONE BITARTRATE

REACTIONS (3)
  - Abdominal pain [None]
  - Pancreatic calcification [None]
  - Jaundice cholestatic [None]

NARRATIVE: CASE EVENT DATE: 20150117
